FAERS Safety Report 7526012-7 (Version None)
Quarter: 2011Q2

REPORT INFORMATION
  Report Type: 
  Country: None (occurrence: None)
  Receive Date: 20110606
  Receipt Date: 20110601
  Transmission Date: 20111010
  Serious: Yes (Hospitalization, Other)
  Sender: FDA-Public Use
  Company Number: CA-ABBOTT-09P-028-0589449-00

PATIENT
  Sex: Female
  Weight: 49.032 kg

DRUGS (15)
  1. TYLENOL (CAPLET) [Concomitant]
     Indication: PRODUCT USED FOR UNKNOWN INDICATION
  2. NASONEX [Concomitant]
     Indication: PRODUCT USED FOR UNKNOWN INDICATION
  3. IMURAN [Concomitant]
     Indication: PRODUCT USED FOR UNKNOWN INDICATION
  4. CELEBREX [Concomitant]
     Indication: RHEUMATOID ARTHRITIS
     Route: 048
     Dates: start: 20060101
  5. HUMIRA [Suspect]
     Indication: RHEUMATOID ARTHRITIS
     Route: 058
     Dates: start: 20050706, end: 20090613
  6. FOSOVANCE [Concomitant]
     Indication: PRODUCT USED FOR UNKNOWN INDICATION
     Dosage: 70 MG Q WEEKLY
  7. CALTRATE + D [Concomitant]
     Indication: PRODUCT USED FOR UNKNOWN INDICATION
     Dosage: 400 I.U. 2 TABS
  8. FERROUS FUMARATE [Concomitant]
     Indication: PRODUCT USED FOR UNKNOWN INDICATION
     Dosage: 300 MG QHS   1 TAB
  9. DILAUDID [Concomitant]
     Indication: PRODUCT USED FOR UNKNOWN INDICATION
     Dosage: 2 MG 1-2 TABS
  10. GLUCOSAMINE [Concomitant]
     Indication: PRODUCT USED FOR UNKNOWN INDICATION
     Dosage: 650 MG 2 TABS
  11. MULTIVITAMIN AND MINERAL [Concomitant]
     Indication: PRODUCT USED FOR UNKNOWN INDICATION
  12. DOCUSATE SODIUM [Concomitant]
     Indication: PRODUCT USED FOR UNKNOWN INDICATION
     Dosage: 100 MG 1 CAP BID
  13. LOVENOX [Concomitant]
     Indication: PRODUCT USED FOR UNKNOWN INDICATION
     Dosage: 40 MG   LAST DOSE 5 AUG 2009
     Route: 058
  14. ARTHROTEC [Concomitant]
     Indication: PRODUCT USED FOR UNKNOWN INDICATION
     Dates: start: 20080101, end: 20090401
  15. REACTINE [Concomitant]
     Indication: HYPERSENSITIVITY
     Route: 048
     Dates: start: 20060101

REACTIONS (3)
  - OSTEONECROSIS [None]
  - HAEMOGLOBIN DECREASED [None]
  - ARTHRALGIA [None]
